FAERS Safety Report 8838724 (Version 3)
Quarter: 2012Q4

REPORT INFORMATION
  Report Type: Report from Study
  Country: US (occurrence: US)
  Receive Date: 20121012
  Receipt Date: 20121204
  Transmission Date: 20130627
  Serious: No
  Sender: FDA-Public Use
  Company Number: US-US-EMD SERONO, INC.-7166697

PATIENT
  Age: 39 Year
  Sex: Female

DRUGS (4)
  1. REBIF [Suspect]
     Indication: MULTIPLE SCLEROSIS
     Dates: start: 20071022, end: 20080114
  2. REBIF [Suspect]
     Dates: start: 20090610, end: 20100310
  3. REBIF [Suspect]
     Dates: start: 20110217, end: 20111026
  4. REBIF [Suspect]
     Route: 058
     Dates: start: 20120629

REACTIONS (6)
  - Hyperprolactinaemia [Unknown]
  - Post procedural discharge [Unknown]
  - Breast mass [Not Recovered/Not Resolved]
  - Central nervous system lesion [Unknown]
  - Fatigue [Not Recovered/Not Resolved]
  - Injection site erythema [Not Recovered/Not Resolved]
